FAERS Safety Report 12073059 (Version 1)
Quarter: 2016Q1

REPORT INFORMATION
  Report Type: Report from Study
  Country: PL (occurrence: PL)
  Receive Date: 20160212
  Receipt Date: 20160212
  Transmission Date: 20160526
  Serious: Yes (Death)
  Sender: FDA-Public Use
  Company Number: PL-SA-2016SA026087

PATIENT

DRUGS (4)
  1. CLOFARABINE [Suspect]
     Active Substance: CLOFARABINE
     Indication: ACUTE MYELOID LEUKAEMIA
     Route: 042
  2. VINORELBINE [Suspect]
     Active Substance: VINORELBINE\VINORELBINE TARTRATE
     Indication: ACUTE MYELOID LEUKAEMIA
     Route: 042
  3. TOPOTECAN [Suspect]
     Active Substance: TOPOTECAN\TOPOTECAN HYDROCHLORIDE
     Indication: ACUTE MYELOID LEUKAEMIA
     Route: 041
  4. THIOTEPA. [Suspect]
     Active Substance: THIOTEPA
     Indication: ACUTE MYELOID LEUKAEMIA
     Route: 042

REACTIONS (4)
  - Off label use [Unknown]
  - Pancytopenia [Fatal]
  - Respiratory failure [Fatal]
  - Fungal infection [Fatal]
